FAERS Safety Report 11281783 (Version 5)
Quarter: 2015Q4

REPORT INFORMATION
  Report Type: Report from Study
  Country: US (occurrence: US)
  Receive Date: 20150717
  Receipt Date: 20151213
  Transmission Date: 20160304
  Serious: No
  Sender: FDA-Public Use
  Company Number: PHEH2014US024086

PATIENT
  Age: 21 Year
  Sex: Female

DRUGS (6)
  1. DEXAMETASON//DEXAMETHASONE [Concomitant]
     Indication: PRODUCT USED FOR UNKNOWN INDICATION
     Route: 065
  2. AFINITOR [Suspect]
     Active Substance: EVEROLIMUS
     Indication: ANGIOMYOLIPOMA
     Dosage: 10 MG, QD
     Route: 048
     Dates: start: 20141110
  3. AFINITOR [Suspect]
     Active Substance: EVEROLIMUS
     Dosage: 2.5 MG, QOD
     Route: 048
  4. AFINITOR [Suspect]
     Active Substance: EVEROLIMUS
     Dosage: 5 MG, QOD (EVERY OTHER DAY)
     Route: 048
  5. AFINITOR [Suspect]
     Active Substance: EVEROLIMUS
     Dosage: 5 MG, QD
     Route: 048
     Dates: start: 201501
  6. ADVIL [Concomitant]
     Active Substance: IBUPROFEN
     Indication: PRODUCT USED FOR UNKNOWN INDICATION
     Dosage: UNK, PRN
     Route: 065

REACTIONS (15)
  - Gastrointestinal disorder [Unknown]
  - Headache [Unknown]
  - Hepatic enzyme abnormal [Unknown]
  - Abdominal discomfort [Unknown]
  - Malaise [Unknown]
  - Eating disorder [Unknown]
  - Muscle spasms [Unknown]
  - Pyrexia [Unknown]
  - Lymph node pain [Unknown]
  - Myalgia [Recovered/Resolved]
  - Sinusitis [Unknown]
  - Abdominal pain upper [Recovered/Resolved]
  - Stomatitis [Unknown]
  - Mouth ulceration [Unknown]
  - Aphthous ulcer [Unknown]

NARRATIVE: CASE EVENT DATE: 20141126
